FAERS Safety Report 24322046 (Version 1)
Quarter: 2024Q3

REPORT INFORMATION
  Report Type: Report from Study
  Country: US (occurrence: None)
  Receive Date: 20240916
  Receipt Date: 20240916
  Transmission Date: 20241016
  Serious: Yes (Other)
  Sender: ASTRAZENECA
  Company Number: 2024A205746

PATIENT
  Sex: Male
  Weight: 116 kg

DRUGS (1)
  1. KOSELUGO [Suspect]
     Active Substance: SELUMETINIB
     Route: 048

REACTIONS (2)
  - Neoplasm [Not Recovered/Not Resolved]
  - Drug ineffective [Not Recovered/Not Resolved]
